FAERS Safety Report 7553844-1 (Version None)
Quarter: 2011Q2

REPORT INFORMATION
  Report Type: 
  Country: None (occurrence: None)
  Receive Date: 20110617
  Receipt Date: 20110613
  Transmission Date: 20111010
  Serious: Yes (Life-Threatening, Hospitalization, Other)
  Sender: FDA-Public Use
  Company Number: US-BRISTOL-MYERS SQUIBB COMPANY-15540792

PATIENT
  Age: 21 Year
  Sex: Male

DRUGS (3)
  1. LEXAPRO [Concomitant]
     Dosage: 1 DF : 20-60MG
  2. ADDERALL XR 10 [Concomitant]
     Dosage: 1 DF = 20-30MG
  3. ABILIFY [Suspect]
     Indication: DEPRESSION
     Route: 048
     Dates: start: 20100101

REACTIONS (3)
  - FATIGUE [None]
  - COMA [None]
  - TYPE 1 DIABETES MELLITUS [None]
